FAERS Safety Report 8277019 (Version 3)
Quarter: 2014Q2

REPORT INFORMATION
  Report Type: Report from Study
  Country: PE (occurrence: PE)
  Receive Date: 20111206
  Receipt Date: 20140417
  Transmission Date: 20141212
  Serious: Yes (Death, Life-Threatening, Hospitalization)
  Sender: FDA-Public Use
  Company Number: PHHO2010PE17653

PATIENT
  Sex: 0

DRUGS (1)
  1. AFINITOR [Suspect]
     Indication: METASTATIC GASTRIC CANCER
     Dosage: 10 MG, QD
     Route: 048
     Dates: start: 20101110, end: 20101115

REACTIONS (24)
  - Gastrointestinal haemorrhage [Unknown]
  - Coagulation test abnormal [Unknown]
  - Skin mass [Unknown]
  - Haematochezia [Unknown]
  - Anaemia [Unknown]
  - Pneumonitis [Unknown]
  - Obstructive airways disorder [Unknown]
  - Dyspnoea [Unknown]
  - Cough [Unknown]
  - Mucosal dryness [Unknown]
  - Cardiac murmur [Unknown]
  - Tuberculosis [Recovering/Resolving]
  - Urosepsis [Fatal]
  - Pyelonephritis acute [Unknown]
  - Pyrexia [Unknown]
  - Decreased appetite [Unknown]
  - Nausea [Unknown]
  - Malaise [Unknown]
  - Back pain [Unknown]
  - Pallor [Unknown]
  - Escherichia infection [Unknown]
  - Bladder diverticulum [Unknown]
  - Abdominal pain [Unknown]
  - Diarrhoea [Recovered/Resolved]
